FAERS Safety Report 4696313-9 (Version None)
Quarter: 2005Q2

REPORT INFORMATION
  Report Type: 
  Country: None (occurrence: None)
  Receive Date: 20050621
  Receipt Date: 20050610
  Transmission Date: 20051028
  Serious: Yes (Other)
  Sender: FDA-Public Use
  Company Number: PHEH2005US06616

PATIENT
  Age: 76 Year
  Sex: Male
  Weight: 64 kg

DRUGS (8)
  1. AREDIA [Suspect]
     Indication: MULTIPLE MYELOMA
     Dosage: 90 MG, QW4
     Route: 042
     Dates: start: 19980908, end: 20040115
  2. PROCRIT /00909301/ [Concomitant]
  3. DECADRON /CAN/ [Concomitant]
  4. ADRIAMYCINE + VINCRISTINE [Concomitant]
  5. DACTINOMYCIN [Concomitant]
  6. BIAXIN [Concomitant]
     Dosage: UNK, UNK
     Dates: start: 20040111
  7. THALIDOMIDE [Concomitant]
     Dates: start: 20000101
  8. ZOMETA [Suspect]
     Indication: MULTIPLE MYELOMA
     Route: 042
     Dates: start: 19980908, end: 20040115

REACTIONS (1)
  - ASEPTIC NECROSIS BONE [None]
